FAERS Safety Report 8802664 (Version 2)
Quarter: 2013Q2

REPORT INFORMATION
  Report Type: Spontaneous
  Country: US (occurrence: US)
  Receive Date: 20120921
  Receipt Date: 20130510
  Transmission Date: 20140414
  Serious: No
  Sender: FDA-Public Use
  Company Number: US-PFIZER INC-2012213511

PATIENT
  Age: 50 Year
  Sex: Male
  Weight: 74.83 kg

DRUGS (4)
  1. LYRICA [Suspect]
     Indication: FIBROMYALGIA
     Dosage: 150 MG, 3X/DAY
     Route: 048
     Dates: start: 2008, end: 201205
  2. LYRICA [Suspect]
     Dosage: 150 MG, 4X/DAY
     Route: 048
     Dates: start: 201205, end: 201206
  3. LYRICA [Suspect]
     Dosage: 150 MG, 3X/DAY
     Route: 048
     Dates: start: 201206
  4. URSODIOL [Concomitant]
     Dosage: UNK

REACTIONS (5)
  - Drug ineffective [Unknown]
  - Local swelling [Unknown]
  - Somnolence [Recovering/Resolving]
  - Asthenia [Unknown]
  - Fatigue [Unknown]
